FAERS Safety Report 5763899-2 (Version None)
Quarter: 2008Q2

REPORT INFORMATION
  Report Type: 
  Country: None (occurrence: None)
  Receive Date: 20080606
  Receipt Date: 20080606
  Transmission Date: 20081010
  Serious: Yes (Other)
  Sender: FDA-Public Use
  Company Number: None

PATIENT
  Age: 48 Year
  Sex: Female
  Weight: 52.1637 kg

DRUGS (2)
  1. TYLENOL PM EXTRA STRENGTH MCNEIL [Suspect]
     Indication: INSOMNIA
     Dosage: 2 GELTABS, NO MORE 8 W/24 HR PO
     Route: 048
     Dates: start: 20080604, end: 20080604
  2. TYLENOL PM EXTRA STRENGTH MCNEIL [Suspect]
     Indication: PAIN
     Dosage: 2 GELTABS, NO MORE 8 W/24 HR PO
     Route: 048
     Dates: start: 20080604, end: 20080604

REACTIONS (3)
  - AGITATION [None]
  - CONFUSIONAL STATE [None]
  - FATIGUE [None]
